FAERS Safety Report 5731319-X (Version None)
Quarter: 2008Q2

REPORT INFORMATION
  Report Type: 
  Country: None (occurrence: None)
  Receive Date: 20080506
  Receipt Date: 20080423
  Transmission Date: 20081010
  Serious: Yes (Other)
  Sender: FDA-Public Use
  Company Number: 2008011203

PATIENT
  Sex: Female

DRUGS (3)
  1. ZYRTEC [Suspect]
  2. FELDENE [Suspect]
  3. NEURONTIN [Suspect]

REACTIONS (2)
  - MALAISE [None]
  - SURGERY [None]
